FAERS Safety Report 5730680-X (Version None)
Quarter: 2008Q2

REPORT INFORMATION
  Report Type: 
  Country: None (occurrence: None)
  Receive Date: 20080505
  Receipt Date: 20080505
  Transmission Date: 20081010
  Serious: Yes (Other)
  Sender: FDA-Public Use
  Company Number: None

PATIENT
  Sex: Female
  Weight: 72.5755 kg

DRUGS (2)
  1. LAMICTAL [Suspect]
     Indication: DEPRESSION
     Dosage: 25MG 1 TIME DAILY PO
     Route: 048
     Dates: start: 20080218, end: 20080225
  2. LAMICTAL [Suspect]
     Indication: POST-TRAUMATIC STRESS DISORDER
     Dosage: 25MG 1 TIME DAILY PO
     Route: 048
     Dates: start: 20080218, end: 20080225

REACTIONS (2)
  - STEVENS-JOHNSON SYNDROME [None]
  - WEIGHT DECREASED [None]
